FAERS Safety Report 18141318 (Version 1)
Quarter: 2020Q3

REPORT INFORMATION
  Report Type: Spontaneous
  Country: GB (occurrence: GB)
  Receive Date: 20200812
  Receipt Date: 20200812
  Transmission Date: 20201103
  Serious: Yes (Disabling)
  Sender: FDA-Public Use
  Company Number: GB-MYLANLABS-2007S1013670

PATIENT
  Age: 47 Year
  Sex: Male

DRUGS (7)
  1. CARBAMAZEPINE. [Interacting]
     Active Substance: CARBAMAZEPINE
     Indication: SEIZURE
     Dosage: 1600 MILLIGRAM, QD (800 MG, 2X/DAY (CONTROL?RELEASE))
  2. LEVETIRACETAM. [Interacting]
     Active Substance: LEVETIRACETAM
     Dosage: 500 MILLIGRAM, QD
  3. LAMOTRIGINE. [Concomitant]
     Active Substance: LAMOTRIGINE
     Indication: SEIZURE
     Dosage: 100 MG,BID (200 MG, QD)
  4. LEVETIRACETAM. [Suspect]
     Active Substance: LEVETIRACETAM
     Indication: SEIZURE
     Dosage: 1000 MG,QD
  5. CARBAMAZEPINE. [Interacting]
     Active Substance: CARBAMAZEPINE
     Dosage: 1200 MILLIGRAM, QD (600 MG, 2X/DAY)
  6. LEVETIRACETAM. [Interacting]
     Active Substance: LEVETIRACETAM
     Dosage: 2000 MILLIGRAM, QD (1000 MG, 2X/DAY)
  7. SODIUM VALPROATE [Concomitant]
     Active Substance: VALPROATE SODIUM
     Indication: SEIZURE
     Dosage: 700 MG,BID (1400MG, QD)

REACTIONS (4)
  - Toxicity to various agents [Unknown]
  - Nystagmus [Recovered/Resolved]
  - Ataxia [Recovered/Resolved]
  - Drug interaction [Unknown]
